FAERS Safety Report 8986186 (Version 1)
Quarter: 2012Q4

REPORT INFORMATION
  Report Type: Spontaneous
  Country: US (occurrence: None)
  Receive Date: 20121217
  Receipt Date: 20121217
  Transmission Date: 20130627
  Serious: Yes (Other)
  Sender: FDA-Public Use
  Company Number: 7121582

PATIENT
  Sex: Female
  Weight: 61 kg

DRUGS (1)
  1. RECOMBINANT HUMAN FOLLICLE-STIMULATING HORMONE (R-HFSH) (FOLLITROPIN ALFA) [Suspect]

REACTIONS (1)
  - Ovarian hyperstimulation syndrome [None]
